FAERS Safety Report 9186935 (Version 1)
Quarter: 2013Q1

REPORT INFORMATION
  Report Type: Spontaneous
  Country: IN (occurrence: IN)
  Receive Date: 20130325
  Receipt Date: 20130325
  Transmission Date: 20140127
  Serious: Yes (Death, Hospitalization, Disabling)
  Sender: FDA-Public Use
  Company Number: IN-VIIV HEALTHCARE LIMITED-B0841906A

PATIENT
  Age: 27 Year
  Sex: Male

DRUGS (4)
  1. LAMIVUDINE-HIV [Suspect]
     Indication: HIV INFECTION
     Route: 065
  2. STAVUDINE [Suspect]
     Indication: HIV INFECTION
     Route: 065
  3. EFAVIRENZ [Suspect]
     Indication: HIV INFECTION
     Route: 065
  4. RHZE (RIFAMPICIN + ISONIAZID + PYRAZINAMIDE + ETHAMBUTOL) [Concomitant]
     Route: 065

REACTIONS (17)
  - Immune reconstitution inflammatory syndrome [Fatal]
  - Pulmonary tuberculosis [Fatal]
  - Osteomyelitis [Fatal]
  - Dactylitis [Fatal]
  - Cellulitis [Unknown]
  - Pyrexia [Unknown]
  - Ulcer [Unknown]
  - Dyspnoea [Unknown]
  - Arthralgia [Unknown]
  - Decreased appetite [Unknown]
  - Tachycardia [Unknown]
  - Deformity [Unknown]
  - Hypokinesia [Unknown]
  - Joint warmth [Unknown]
  - Osteoporosis [Unknown]
  - CD4 lymphocytes [Unknown]
  - Ulcer [Unknown]
